FAERS Safety Report 14016198 (Version 1)
Quarter: 2017Q3

REPORT INFORMATION
  Report Type: Spontaneous
  Country: US (occurrence: US)
  Receive Date: 20170927
  Receipt Date: 20170927
  Transmission Date: 20171128
  Serious: No
  Sender: FDA-Public Use
  Company Number: US-SA-2016SA172670

PATIENT
  Age: 49 Year
  Sex: Male

DRUGS (1)
  1. LEMTRADA [Suspect]
     Active Substance: ALEMTUZUMAB
     Route: 042
     Dates: start: 200901, end: 201001

REACTIONS (4)
  - Weight decreased [Not Recovered/Not Resolved]
  - Back pain [Unknown]
  - Gait disturbance [Unknown]
  - Night sweats [Not Recovered/Not Resolved]

NARRATIVE: CASE EVENT DATE: 2013
